FAERS Safety Report 4951010-7 (Version None)
Quarter: 2006Q1

REPORT INFORMATION
  Report Type: 
  Country: None (occurrence: None)
  Receive Date: 20060322
  Receipt Date: 20060313
  Transmission Date: 20060701
  Serious: Yes (Hospitalization)
  Sender: FDA-Public Use
  Company Number: DE-ABBOTT-06P-062-0327796-01

PATIENT
  Sex: Female

DRUGS (18)
  1. ADALIMUMAB [Suspect]
     Indication: RHEUMATOID ARTHRITIS
     Route: 058
     Dates: start: 20040203, end: 20060217
  2. ADALIMUMAB [Suspect]
     Route: 058
     Dates: start: 20060227
  3. PREDNISOLONE SODIUM SUCCINATE INJ [Concomitant]
     Indication: RHEUMATOID ARTHRITIS
     Route: 042
     Dates: start: 20060201, end: 20060201
  4. CARBAMAZEPINE [Concomitant]
     Indication: EPILEPSY
     Dates: start: 19970101, end: 20060201
  5. CARBAMAZEPINE [Concomitant]
     Dates: start: 20060201, end: 20060301
  6. PRIMIDONE [Concomitant]
     Indication: EPILEPSY
     Dates: start: 20060201
  7. LEVOCETIRIZINE DIHYDROCHLORIDE [Concomitant]
     Indication: PRURITUS
     Dates: start: 20050101
  8. TETRAZEPAM [Concomitant]
     Indication: RHEUMATOID ARTHRITIS
     Dates: start: 19970101
  9. MAGNESIUM CARBONATE [Concomitant]
     Indication: MYOSITIS
     Dates: start: 20060101
  10. DYAZIDE [Concomitant]
     Indication: HYPERTENSION
     Dates: start: 20010101
  11. PANTOPRAZOLE SODIUM [Concomitant]
     Indication: PROPHYLAXIS AGAINST GASTROINTESTINAL ULCER
     Dates: start: 20050101
  12. CALCIUM CARBONATE [Concomitant]
     Indication: OSTEOPOROSIS
     Dates: start: 20040101
  13. LACTULOSE [Concomitant]
     Indication: CONSTIPATION
     Dates: start: 20050101
  14. FOLSAM [Concomitant]
     Indication: MEDICAL DIET
     Dates: start: 20050101
  15. POTASSIUM CHLORIDE [Concomitant]
     Indication: HYPOKALAEMIA
     Dates: start: 20060201
  16. NEDOLAN [Concomitant]
     Indication: PAIN
     Dates: start: 20060101
  17. COLECALCIFEROL [Concomitant]
     Indication: OSTEOPOROSIS
     Dates: start: 19980101
  18. COMMERICAL HUMIRA [Concomitant]
     Indication: RHEUMATOID ARTHRITIS
     Route: 058
     Dates: start: 20031016

REACTIONS (1)
  - EOSINOPHILIA [None]
